FAERS Safety Report 21490442 (Version 1)
Quarter: 2022Q4

REPORT INFORMATION
  Report Type: Spontaneous
  Country: US (occurrence: None)
  Receive Date: 20221021
  Receipt Date: 20221021
  Transmission Date: 20230113
  Serious: No
  Sender: FDA-Public Use
  Company Number: US-SUPERNUS Pharmaceuticals, Inc.-SUP202209-002869

PATIENT
  Age: 9 Year
  Sex: Male
  Weight: 32.65 kg

DRUGS (3)
  1. QELBREE [Suspect]
     Active Substance: VILOXAZINE HYDROCHLORIDE
     Indication: Attention deficit hyperactivity disorder
     Dates: start: 20220822
  2. QELBREE [Suspect]
     Active Substance: VILOXAZINE HYDROCHLORIDE
     Dates: start: 20220829
  3. MELATONIN [Concomitant]
     Active Substance: MELATONIN
     Dosage: NOT PROVIDED

REACTIONS (4)
  - Skin odour abnormal [Unknown]
  - Psychomotor hyperactivity [Unknown]
  - Drug effect less than expected [Unknown]
  - Product dose omission issue [Unknown]
